FAERS Safety Report 10430807 (Version 1)
Quarter: 2014Q3

REPORT INFORMATION
  Report Type: Spontaneous
  Country: TH (occurrence: TH)
  Receive Date: 20140904
  Receipt Date: 20140904
  Transmission Date: 20150326
  Serious: Yes (Death, Other)
  Sender: FDA-Public Use
  Company Number: PHHY2014TH110054

PATIENT
  Age: 49 Year
  Sex: Female

DRUGS (4)
  1. LOPINAVIR W/RITONAVIR [Interacting]
     Active Substance: LOPINAVIR\RITONAVIR
     Indication: HIV INFECTION
  2. CAFFEINE CITRATE,ERGOTAMINE TARTRATE [Suspect]
     Active Substance: CAFFEINE CITRATE\ERGOTAMINE TARTRATE
     Indication: HEADACHE
     Dosage: 3 DF, UNK
  3. ZIDOVUDINE. [Concomitant]
     Active Substance: ZIDOVUDINE
     Indication: HIV INFECTION
  4. LAMIVUDINE. [Concomitant]
     Active Substance: LAMIVUDINE
     Indication: HIV INFECTION

REACTIONS (11)
  - Rhabdomyolysis [Unknown]
  - Pulse absent [Unknown]
  - Blood pressure increased [Recovering/Resolving]
  - Renal failure acute [Unknown]
  - Hypoaesthesia [Unknown]
  - Cyanosis [Unknown]
  - Ergot poisoning [Unknown]
  - Heart rate increased [Recovering/Resolving]
  - Cardiac arrest [Fatal]
  - Anuria [Unknown]
  - Drug interaction [Unknown]
